FAERS Safety Report 10338350 (Version 1)
Quarter: 2014Q3

REPORT INFORMATION
  Report Type: Spontaneous
  Country: BR (occurrence: BR)
  Receive Date: 20140724
  Receipt Date: 20140724
  Transmission Date: 20150326
  Serious: Yes (Other)
  Sender: FDA-Public Use
  Company Number: BR-ENDO PHARMACEUTICALS INC.-AVEE20140145

PATIENT
  Sex: Male

DRUGS (2)
  1. AVEED [Suspect]
     Active Substance: TESTOSTERONE UNDECANOATE
     Dosage: UNKNOWN
     Route: 030
     Dates: end: 201312
  2. AVEED [Suspect]
     Active Substance: TESTOSTERONE UNDECANOATE
     Indication: HYPOGONADISM
     Dosage: UNKNOWN
     Route: 030

REACTIONS (1)
  - Pancreatitis [Not Recovered/Not Resolved]
